FAERS Safety Report 7172710-7 (Version None)
Quarter: 2010Q4

REPORT INFORMATION
  Report Type: 
  Country: None (occurrence: None)
  Receive Date: 20101217
  Receipt Date: 20100222
  Transmission Date: 20110411
  Serious: Yes (Hospitalization)
  Sender: FDA-Public Use
  Company Number: US-AMGEN-QUU390826

PATIENT

DRUGS (2)
  1. ENBREL [Suspect]
     Indication: RHEUMATOID ARTHRITIS
     Dosage: 50 MG, QWK
     Route: 058
     Dates: start: 20050101, end: 20100201
  2. METHOTREXATE [Concomitant]
     Dosage: UNK UNK, UNK
     Dates: start: 20050101, end: 20080101

REACTIONS (5)
  - ANGIOLIPOMA [None]
  - LYMPHADENITIS [None]
  - LYMPHORRHOEA [None]
  - POST PROCEDURAL COMPLICATION [None]
  - TONGUE NEOPLASM MALIGNANT STAGE UNSPECIFIED [None]
